FAERS Safety Report 17405177 (Version 1)
Quarter: 2020Q1

REPORT INFORMATION
  Report Type: Spontaneous
  Country: ES (occurrence: ES)
  Receive Date: 20200212
  Receipt Date: 20200212
  Transmission Date: 20200409
  Serious: Yes (Hospitalization, Other)
  Sender: FDA-Public Use
  Company Number: ES-AUROBINDO-AUR-APL-2020-007795

PATIENT
  Age: 58 Year
  Sex: Male

DRUGS (2)
  1. VALPROIC ACID. [Suspect]
     Active Substance: VALPROIC ACID
     Indication: IDIOPATHIC GENERALISED EPILEPSY
     Dosage: 1000 MILLIGRAM, ONCE A DAY
     Route: 065
  2. LEVETIRACETAM. [Suspect]
     Active Substance: LEVETIRACETAM
     Indication: IDIOPATHIC GENERALISED EPILEPSY
     Dosage: 3000 MILLIGRAM, ONCE A DAY
     Route: 065

REACTIONS (4)
  - Altered state of consciousness [Recovering/Resolving]
  - Respiratory tract infection [Recovering/Resolving]
  - Hypoaesthesia [Recovering/Resolving]
  - Seizure [Recovering/Resolving]
